FAERS Safety Report 12842096 (Version 5)
Quarter: 2016Q4

REPORT INFORMATION
  Report Type: Report from Study
  Country: CA (occurrence: CA)
  Receive Date: 20161013
  Receipt Date: 20161110
  Transmission Date: 20170207
  Serious: Yes (Other)
  Sender: FDA-Public Use
  Company Number: CA-BEH-2016074186

PATIENT
  Age: 55 Year
  Sex: Female

DRUGS (7)
  1. HIZENTRA [Suspect]
     Active Substance: HUMAN IMMUNOGLOBULIN G
     Indication: SELECTIVE IGG SUBCLASS DEFICIENCY
     Dosage: 30 G, QMT
     Route: 058
  2. HIZENTRA [Suspect]
     Active Substance: HUMAN IMMUNOGLOBULIN G
     Indication: SECONDARY IMMUNODEFICIENCY
     Dosage: 6G, 8G, 8G, 8G, QW
     Route: 058
     Dates: start: 20161006
  3. RANITIDINE. [Concomitant]
     Active Substance: RANITIDINE
     Route: 065
  4. HIZENTRA [Suspect]
     Active Substance: HUMAN IMMUNOGLOBULIN G
     Dosage: 4 G PER INFUSION
     Route: 058
  5. DILTIAZEM. [Concomitant]
     Active Substance: DILTIAZEM
     Route: 065
  6. BOTOX [Concomitant]
     Active Substance: ONABOTULINUMTOXINA
     Dosage: EVERY 4 MONTHS
     Route: 065
  7. REACTINE                           /00884302/ [Concomitant]
     Active Substance: CETIRIZINE HYDROCHLORIDE
     Indication: HYPERSENSITIVITY
     Route: 065

REACTIONS (10)
  - Malaise [Unknown]
  - Respiratory tract infection [Recovering/Resolving]
  - Infusion site haemorrhage [Unknown]
  - Myalgia [Recovering/Resolving]
  - Sinusitis [Recovering/Resolving]
  - Fatigue [Recovering/Resolving]
  - Fatigue [Unknown]
  - Nasopharyngitis [Unknown]
  - Influenza like illness [Recovering/Resolving]
  - Dyspnoea [Recovering/Resolving]

NARRATIVE: CASE EVENT DATE: 20161006
